FAERS Safety Report 5940230-0 (Version None)
Quarter: 2008Q4

REPORT INFORMATION
  Report Type: 
  Country: None (occurrence: None)
  Receive Date: 20081104
  Receipt Date: 20081027
  Transmission Date: 20090506
  Serious: Yes (Other)
  Sender: FDA-Public Use
  Company Number: US-AMGEN-QUU315698

PATIENT
  Sex: Male

DRUGS (2)
  1. ENBREL [Suspect]
     Indication: PSORIATIC ARTHROPATHY
     Dates: start: 20050101, end: 20080926
  2. ENBREL [Suspect]
     Indication: PSORIASIS

REACTIONS (2)
  - COCCIDIOIDOMYCOSIS [None]
  - PSORIASIS [None]
